FAERS Safety Report 4600381-X (Version None)
Quarter: 2005Q1

REPORT INFORMATION
  Report Type: 
  Country: None (occurrence: None)
  Receive Date: 20050127
  Receipt Date: 20041020
  Transmission Date: 20050727
  Serious: No
  Sender: FDA-Public Use
  Company Number: USA04181645

PATIENT
  Age: 64 Year
  Sex: Female

DRUGS (6)
  1. STRATTERA [Suspect]
     Dosage: 80 MG DAY
     Dates: start: 20040801
  2. PROZAC [Suspect]
  3. LAMICTAL [Concomitant]
  4. GLUCOPHAGE [Concomitant]
  5. NEXIUM [Concomitant]
  6. VIOXX [Concomitant]

REACTIONS (2)
  - CRYING [None]
  - STOMACH DISCOMFORT [None]
